FAERS Safety Report 16826235 (Version 1)
Quarter: 2019Q3

REPORT INFORMATION
  Report Type: Spontaneous
  Country: US (occurrence: US)
  Receive Date: 20190726
  Receipt Date: 20190726
  Transmission Date: 20191005
  Serious: Yes (Death, Hospitalization)
  Sender: FDA-Public Use
  Company Number: None

PATIENT
  Age: 78 Year
  Sex: Male
  Weight: 70 kg

DRUGS (2)
  1. CISPLATIN. [Suspect]
     Active Substance: CISPLATIN
     Dates: end: 20190430
  2. ETOPOSIDE (VP-16) [Suspect]
     Active Substance: ETOPOSIDE
     Dates: end: 20190426

REACTIONS (6)
  - Dyspnoea [None]
  - Pneumonia [None]
  - Sepsis [None]
  - Respiratory failure [None]
  - Pleural effusion [None]
  - Deep vein thrombosis [None]

NARRATIVE: CASE EVENT DATE: 20190711
